FAERS Safety Report 9153396 (Version 1)
Quarter: 2013Q1

REPORT INFORMATION
  Report Type: Spontaneous
  Country: DK (occurrence: None)
  Receive Date: 20130204
  Receipt Date: 20130204
  Transmission Date: 20140127
  Serious: Yes (Hospitalization)
  Sender: FDA-Public Use
  Company Number: 2013MA000789

PATIENT
  Age: 54 Year
  Sex: Female

DRUGS (14)
  1. OXALIPLATIN FOR INJECTION USP 100MG SINGLE-DOSE VIALS (ATLLC) (OXALIPLATIN) [Suspect]
     Indication: COLORECTAL CANCER
     Route: 042
  2. FLUOROURACIL [Suspect]
     Indication: COLORECTAL CANCER
  3. BEVACIZUMAB (BEVACIZUMAB) [Suspect]
     Indication: COLORECTAL CANCER
     Route: 042
     Dates: start: 20090209
  4. MULTIVITAMINS [Concomitant]
  5. FRAGMIN [Concomitant]
  6. DUPHALAC [Concomitant]
  7. MEDROL [Concomitant]
  8. SOMAC [Concomitant]
  9. OXYNORM [Concomitant]
  10. OXYCONTIN [Concomitant]
  11. PANODIL [Concomitant]
  12. MORPHINE [Concomitant]
  13. CONVALLARIA MAJALIS/CRATAEGUS/LAEVIGATA/PROPXYPHYLLINE [Concomitant]
  14. DIURAL [Concomitant]

REACTIONS (7)
  - Fall [None]
  - Femoral neck fracture [None]
  - Pain [None]
  - Deep vein thrombosis [None]
  - Febrile neutropenia [None]
  - Colorectal cancer [None]
  - Malignant neoplasm progression [None]
